FAERS Safety Report 12236480 (Version 4)
Quarter: 2016Q2

REPORT INFORMATION
  Report Type: Spontaneous
  Country: US (occurrence: US)
  Receive Date: 20160404
  Receipt Date: 20160516
  Transmission Date: 20160815
  Serious: Yes (Hospitalization)
  Sender: FDA-Public Use
  Company Number: US-ASTRAZENECA-2016SE35731

PATIENT
  Age: 64 Year
  Sex: Female
  Weight: 77 kg

DRUGS (13)
  1. SEROQUEL [Concomitant]
     Active Substance: QUETIAPINE FUMARATE
     Indication: THINKING ABNORMAL
     Dosage: 600 MG, 1X/DAY, ONE 200MG AND ONE 400MG TABLET 1 HOUR BEFORE BEDTIME
     Route: 048
     Dates: start: 1998
  2. NEXIUM 24HR [Suspect]
     Active Substance: ESOMEPRAZOLE MAGNESIUM
     Indication: HYPERCHLORHYDRIA
     Dosage: AT LEAST ONE CAPSULE, SINGLE
     Route: 048
     Dates: start: 20160315, end: 2016
  3. CLONAZEPAM. [Concomitant]
     Active Substance: CLONAZEPAM
     Indication: PANIC ATTACK
     Dosage: UNK
     Route: 048
     Dates: start: 2013
  4. NEXIUM 24HR [Suspect]
     Active Substance: ESOMEPRAZOLE MAGNESIUM
     Indication: DYSPEPSIA
     Dosage: AT LEAST ONE CAPSULE, SINGLE
     Route: 048
     Dates: start: 20160315, end: 2016
  5. CLONAZEPAM. [Concomitant]
     Active Substance: CLONAZEPAM
     Indication: SEIZURE
     Route: 048
  6. CLONAZEPAM. [Concomitant]
     Active Substance: CLONAZEPAM
     Indication: PANIC ATTACK
     Route: 048
  7. NEXIUM 24HR [Suspect]
     Active Substance: ESOMEPRAZOLE MAGNESIUM
     Indication: GASTROOESOPHAGEAL REFLUX DISEASE
     Dosage: AT LEAST ONE CAPSULE, SINGLE
     Route: 048
     Dates: start: 20160315, end: 2016
  8. ZANTAC [Concomitant]
     Active Substance: RANITIDINE HYDROCHLORIDE
     Indication: GASTROOESOPHAGEAL REFLUX DISEASE
     Dosage: EVERY DAY
     Route: 048
     Dates: start: 201603, end: 20160312
  9. CLONAZEPAM. [Concomitant]
     Active Substance: CLONAZEPAM
     Indication: SEIZURE
     Dosage: UNK
     Route: 048
     Dates: start: 2013
  10. ZANTAC [Concomitant]
     Active Substance: RANITIDINE HYDROCHLORIDE
     Indication: GASTROOESOPHAGEAL REFLUX DISEASE
     Dosage: 150 UNK, UNK (ON AN EMPTY STOMACH)
     Route: 048
     Dates: start: 201603
  11. SEROQUEL [Concomitant]
     Active Substance: QUETIAPINE FUMARATE
     Indication: THINKING ABNORMAL
     Dosage: 600 UNK, UNK (1 HOUR BEFORE BEDTIME)
     Route: 048
     Dates: start: 2000
  12. AMANTADINE [Concomitant]
     Active Substance: AMANTADINE
     Indication: DYSKINESIA
     Dosage: 100 MG, 2X/DAY, ONE IN MORNING AND ONE AT NIGHT
     Route: 048
     Dates: start: 201510
  13. AMANTADINE [Concomitant]
     Active Substance: AMANTADINE
     Indication: DYSKINESIA
     Dosage: 100 MG, 2X/DAY, ONE IN MORNING AND ONE AT NIGHT
     Route: 048
     Dates: start: 201601

REACTIONS (6)
  - Product physical issue [Recovered/Resolved]
  - Product tampering [None]
  - Nervousness [Unknown]
  - Poor quality drug administered [Recovered/Resolved]
  - Product container seal issue [Recovered/Resolved]
  - Intentional product misuse [Recovered/Resolved]

NARRATIVE: CASE EVENT DATE: 201603
